FAERS Safety Report 6993398-1 (Version None)
Quarter: 2010Q3

REPORT INFORMATION
  Report Type: 
  Country: None (occurrence: None)
  Receive Date: 20100917
  Receipt Date: 20100428
  Transmission Date: 20110219
  Serious: Yes (Other)
  Sender: FDA-Public Use
  Company Number: US-ASTRAZENECA-2010SE19170

PATIENT
  Age: 51 Year
  Sex: Male

DRUGS (11)
  1. SEROQUEL [Suspect]
     Indication: BIPOLAR DISORDER
     Route: 048
     Dates: end: 20100401
  2. SEROQUEL [Suspect]
     Indication: INSOMNIA
     Route: 048
     Dates: end: 20100401
  3. SEROQUEL [Suspect]
     Indication: MOOD SWINGS
     Route: 048
     Dates: end: 20100401
  4. SEROQUEL [Suspect]
     Route: 048
     Dates: start: 20100401
  5. SEROQUEL [Suspect]
     Route: 048
     Dates: start: 20100401
  6. SEROQUEL [Suspect]
     Route: 048
     Dates: start: 20100401
  7. GEMFIBROZIL [Concomitant]
  8. METFORMIN [Concomitant]
     Indication: DIABETES MELLITUS
     Route: 048
  9. LISINOPRIL [Concomitant]
  10. REGULAR INSULIN [Concomitant]
  11. INSULIN LANTIS [Concomitant]

REACTIONS (5)
  - CONVULSION [None]
  - DIZZINESS [None]
  - DYSKINESIA [None]
  - FALL [None]
  - SYNCOPE [None]
